FAERS Safety Report 6851352-4 (Version None)
Quarter: 2010Q3

REPORT INFORMATION
  Report Type: 
  Country: None (occurrence: None)
  Receive Date: 20100717
  Receipt Date: 20080119
  Transmission Date: 20110219
  Serious: No
  Sender: FDA-Public Use
  Company Number: US-PFIZER INC-2008005953

PATIENT
  Sex: Male
  Weight: 96.818 kg

DRUGS (14)
  1. CHANTIX [Suspect]
     Indication: SMOKING CESSATION THERAPY
     Route: 048
     Dates: start: 20071201
  2. METFORMIN HCL [Concomitant]
     Indication: DIABETES MELLITUS
  3. VESICARE [Concomitant]
  4. TRICOR [Concomitant]
  5. SITAGLIPTIN [Concomitant]
  6. VALSARTAN [Concomitant]
  7. PROTONIX [Concomitant]
  8. WELLBUTRIN XL [Concomitant]
  9. CIALIS [Concomitant]
  10. VYTORIN [Concomitant]
  11. LAMICTAL [Concomitant]
  12. GLIMEPIRIDE [Concomitant]
  13. TAMSULOSIN HYDROCHLORIDE [Concomitant]
  14. AVODART [Concomitant]

REACTIONS (1)
  - DYSGEUSIA [None]
